FAERS Safety Report 21960569 (Version 2)
Quarter: 2023Q1

REPORT INFORMATION
  Report Type: Other
  Country: US (occurrence: None)
  Receive Date: 20230207
  Receipt Date: 20230327
  Transmission Date: 20230418
  Serious: Yes (Other)
  Sender: FDA-Public Use
  Company Number: US-ROCHE-3277834

PATIENT
  Age: 59 Year
  Sex: Male

DRUGS (3)
  1. XOLAIR [Suspect]
     Active Substance: OMALIZUMAB
     Indication: Chronic spontaneous urticaria
     Dosage: INJECT 300MG SUBCUTANEOUSLY EVERY 4 WEEK(S)
     Route: 058
  2. XOLAIR [Suspect]
     Active Substance: OMALIZUMAB
  3. XOLAIR [Suspect]
     Active Substance: OMALIZUMAB

REACTIONS (5)
  - Back disorder [Unknown]
  - Cardiac disorder [Unknown]
  - Blood pressure abnormal [Unknown]
  - Heart rate decreased [Unknown]
  - Sleep apnoea syndrome [Unknown]
